FAERS Safety Report 8818980 (Version 1)
Quarter: 2012Q4

REPORT INFORMATION
  Report Type: 
  Country: BR (occurrence: BR)
  Receive Date: 20121001
  Receipt Date: 20121001
  Transmission Date: 20130627
  Serious: Yes (Hospitalization, Other)
  Sender: FDA-Public Use
  Company Number: PHHY2012BR084638

PATIENT
  Sex: Male
  Weight: 68 kg

DRUGS (5)
  1. SANDOSTATIN LAR [Suspect]
     Indication: ACROMEGALY
     Dosage: 30 mg, QMO
     Route: 030
     Dates: start: 2009
  2. DOSTINEX [Concomitant]
     Indication: ACROMEGALY
     Dosage: 2 DF, per week
     Route: 048
     Dates: start: 2009
  3. CAPTOPRIL [Concomitant]
     Indication: BLOOD PRESSURE
     Dosage: 3 DF, daily
     Route: 048
     Dates: start: 2009
  4. ATORVASTATIN [Concomitant]
     Indication: BLOOD CHOLESTEROL
     Dosage: 10 mg, QD
     Route: 048
     Dates: start: 2009
  5. KETOCONAZOLE [Concomitant]
     Indication: FUNGAL INFECTION
     Dosage: UNK UKN, BID
     Route: 061

REACTIONS (5)
  - Cyst [Recovering/Resolving]
  - American trypanosomiasis [Not Recovered/Not Resolved]
  - Liver disorder [Not Recovered/Not Resolved]
  - Intestinal polyp [Recovered/Resolved]
  - Memory impairment [Not Recovered/Not Resolved]
